FAERS Safety Report 15392000 (Version 5)
Quarter: 2019Q3

REPORT INFORMATION
  Report Type: Spontaneous
  Country: US (occurrence: US)
  Receive Date: 20180917
  Receipt Date: 20190827
  Transmission Date: 20191004
  Serious: No
  Sender: FDA-Public Use
  Company Number: US-PFIZER INC-2018374101

PATIENT
  Age: 58 Year
  Sex: Female
  Weight: 70 kg

DRUGS (2)
  1. LYRICA [Suspect]
     Active Substance: PREGABALIN
     Indication: NERVE INJURY
     Dosage: 75 MG, 2X/DAY
     Dates: start: 2018
  2. LYRICA [Suspect]
     Active Substance: PREGABALIN
     Indication: NECK PAIN
     Dosage: 150 MG, 2X/DAY
     Route: 048

REACTIONS (6)
  - Intentional product use issue [Unknown]
  - Anal incontinence [Unknown]
  - Sensory loss [Unknown]
  - Drug ineffective for unapproved indication [Unknown]
  - Urinary incontinence [Unknown]
  - Off label use [Unknown]

NARRATIVE: CASE EVENT DATE: 2018
